FAERS Safety Report 25726953 (Version 1)
Quarter: 2025Q3

REPORT INFORMATION
  Report Type: Spontaneous
  Country: US (occurrence: None)
  Receive Date: 20250825
  Receipt Date: 20250825
  Transmission Date: 20251021
  Serious: Yes (Hospitalization)
  Sender: FDA-CTU
  Company Number: None

PATIENT
  Age: 48 Year
  Sex: Female

DRUGS (8)
  1. INGREZZA [Suspect]
     Active Substance: VALBENAZINE DITOSYLATE
     Indication: Tardive dyskinesia
     Dosage: 80 MG DAILY ORAL ?
     Route: 048
     Dates: start: 20240223
  2. HYDROXYZINE [Concomitant]
     Active Substance: HYDROXYZINE HYDROCHLORIDE
  3. TRAZODONE [Concomitant]
     Active Substance: TRAZODONE HYDROCHLORIDE
  4. CICLOPIROX [Concomitant]
     Active Substance: CICLOPIROX
  5. MIDODRINE [Concomitant]
     Active Substance: MIDODRINE
  6. XIFAXAN [Concomitant]
     Active Substance: RIFAXIMIN
  7. NALTREXONE [Concomitant]
     Active Substance: NALTREXONE
  8. FLUOXETINE [Concomitant]
     Active Substance: FLUOXETINE HYDROCHLORIDE

REACTIONS (1)
  - Head injury [None]

NARRATIVE: CASE EVENT DATE: 20250815
